FAERS Safety Report 24987592 (Version 3)
Quarter: 2025Q1

REPORT INFORMATION
  Report Type: Spontaneous
  Country: TW (occurrence: TW)
  Receive Date: 20250219
  Receipt Date: 20250225
  Transmission Date: 20250408
  Serious: Yes (Death)
  Sender: PFIZER
  Company Number: TW-PFIZER INC-PV202500020119

PATIENT
  Age: 76 Year
  Sex: Male
  Weight: 77.5 kg

DRUGS (15)
  1. ZYVOX [Suspect]
     Active Substance: LINEZOLID
     Indication: Enterococcal infection
     Dosage: 600 MG, Q (EVERY) 12H
     Route: 048
     Dates: start: 20250202, end: 20250209
  2. ZYVOX [Suspect]
     Active Substance: LINEZOLID
     Indication: Pneumonia
  3. FOLIC ACID [Concomitant]
     Active Substance: FOLIC ACID
     Indication: Vitamin supplementation
     Dosage: 1 TAB, QD
  4. THYROXINE [Concomitant]
     Active Substance: LEVOTHYROXINE
     Indication: Hypothyroidism
     Dosage: 1 TAB, QD
  5. KENTAMIN [Concomitant]
     Indication: Vitamin supplementation
     Dosage: 1 CAP, BID
  6. MEXILETINE [Concomitant]
     Active Substance: MEXILETINE
     Indication: Arrhythmia
     Dosage: 1 CAP, BID
  7. INSULIN GLARGINE [Concomitant]
     Active Substance: INSULIN GLARGINE
     Indication: Diabetes mellitus
     Dosage: 450IU/1.5ML/PEN DM 12-16 UNIT QD
  8. PREDNISOLONE [Concomitant]
     Active Substance: PREDNISOLONE
     Indication: Adrenal insufficiency
  9. INSULIN ASPART [Concomitant]
     Active Substance: INSULIN ASPART
     Indication: Diabetes mellitus
     Dosage: FLEXPEN 300 IU/3ML DM 4-6 UNIT QID
  10. ANIDULAFUNGIN [Concomitant]
     Active Substance: ANIDULAFUNGIN
     Indication: Systemic candida
     Dosage: 1 VIAL, QD
  11. DAPTOMYCIN [Concomitant]
     Active Substance: DAPTOMYCIN
     Indication: Infection
  12. MIDODRINE [Concomitant]
     Active Substance: MIDODRINE
     Indication: Hypotension
  13. MONTMORILLONITE [Concomitant]
     Active Substance: MONTMORILLONITE
     Indication: Diarrhoea
     Dosage: 2 PACK, QID
  14. TEICOPLANIN [Concomitant]
     Active Substance: TEICOPLANIN
     Indication: Infection
  15. AVIBACTAM SODIUM\CEFTAZIDIME [Concomitant]
     Active Substance: AVIBACTAM SODIUM\CEFTAZIDIME
     Indication: Infection
     Dosage: 0.4 VIAL QD

REACTIONS (3)
  - Lactic acidosis [Fatal]
  - Pancreatitis [Fatal]
  - Acute respiratory distress syndrome [Fatal]

NARRATIVE: CASE EVENT DATE: 20250206
